FAERS Safety Report 7245956-7 (Version None)
Quarter: 2011Q1

REPORT INFORMATION
  Report Type: 
  Country: None (occurrence: None)
  Receive Date: 20110126
  Receipt Date: 20101227
  Transmission Date: 20110831
  Serious: Yes (Other)
  Sender: FDA-Public Use
  Company Number: US-BAYER-201012826NA

PATIENT
  Sex: Female
  Weight: 86 kg

DRUGS (3)
  1. YASMIN [Suspect]
     Indication: PRODUCT USED FOR UNKNOWN INDICATION
  2. NSAID'S [Concomitant]
     Indication: JOINT INJURY
     Dates: start: 20040101
  3. YAZ [Suspect]
     Indication: PREMENSTRUAL SYNDROME
     Dates: start: 20070925, end: 20080121

REACTIONS (8)
  - DEEP VEIN THROMBOSIS [None]
  - LIMB DISCOMFORT [None]
  - THROMBOSIS [None]
  - PAIN IN EXTREMITY [None]
  - POST THROMBOTIC SYNDROME [None]
  - WEIGHT FLUCTUATION [None]
  - DEPRESSION [None]
  - ADJUSTMENT DISORDER [None]
